FAERS Safety Report 24555820 (Version 2)
Quarter: 2024Q4

REPORT INFORMATION
  Report Type: Spontaneous
  Country: CN (occurrence: CN)
  Receive Date: 20241028
  Receipt Date: 20241031
  Transmission Date: 20250114
  Serious: Yes (Life-Threatening, Hospitalization)
  Sender: PFIZER
  Company Number: CN-MLMSERVICE-20241015-PI227998-00140-1

PATIENT
  Age: 11 Year
  Sex: Male

DRUGS (6)
  1. CYTARABINE [Suspect]
     Active Substance: CYTARABINE
     Indication: Acute myeloid leukaemia
     Dosage: AT 100 MG/M? INTRAVENOUSLY (IV) EVERY 12 HOURS FOR 7 DAYS, C-HUANA-AML-2015 PROTOCOL
     Route: 042
     Dates: start: 20230603, end: 202308
  2. CYTARABINE [Suspect]
     Active Substance: CYTARABINE
     Dosage: AT 100 MG/M? INTRAVENOUSLY (IV) EVERY 12 HOURS FOR 7 DAYS, C-HUANA-AML-2015 PROTOCOL
     Route: 042
     Dates: start: 20230819
  3. DAUNORUBICIN [Suspect]
     Active Substance: DAUNORUBICIN
     Indication: Acute myeloid leukaemia
     Dosage: AT 60 MG/M2 IV ON DAYS 1, 2, AND 3
     Route: 042
     Dates: start: 20230603, end: 202308
  4. DAUNORUBICIN [Suspect]
     Active Substance: DAUNORUBICIN
     Dosage: AT 60 MG/M2 IV ON DAYS 1, 2, AND 3
     Route: 042
     Dates: start: 20230819
  5. ETOPOSIDE [Suspect]
     Active Substance: ETOPOSIDE
     Indication: Acute myeloid leukaemia
     Dosage: 100 MG/M2 IV DAILY FOR 5 DAYS
     Route: 042
     Dates: start: 20230603, end: 202308
  6. ETOPOSIDE [Suspect]
     Active Substance: ETOPOSIDE
     Dosage: 100 MG/M2 IV DAILY FOR 5 DAYS
     Route: 042
     Dates: start: 20230819

REACTIONS (7)
  - Septic shock [Unknown]
  - Myelosuppression [Not Recovered/Not Resolved]
  - Bone marrow failure [Not Recovered/Not Resolved]
  - Enterococcal infection [Unknown]
  - Pseudomonas infection [Not Recovered/Not Resolved]
  - Dermatitis [Unknown]
  - Sinusitis [Unknown]

NARRATIVE: CASE EVENT DATE: 20230101
